FAERS Safety Report 4941062-2 (Version None)
Quarter: 2006Q1

REPORT INFORMATION
  Report Type: 
  Country: None (occurrence: None)
  Receive Date: 20060307
  Receipt Date: 20060222
  Transmission Date: 20060701
  Serious: Yes (Hospitalization)
  Sender: FDA-Public Use
  Company Number: 163-20785-06020528

PATIENT
  Age: 57 Year
  Sex: Female

DRUGS (8)
  1. THALOMID [Suspect]
     Indication: MULTIPLE MYELOMA
     Dosage: SEE IMAGE
     Route: 048
     Dates: start: 20050802, end: 20060201
  2. THALOMID [Suspect]
     Indication: MULTIPLE MYELOMA
     Dosage: SEE IMAGE
     Route: 048
     Dates: start: 20060201
  3. DEXAMETHASONE [Concomitant]
  4. ACYCLOVIR [Concomitant]
  5. DIFLUCAN [Concomitant]
  6. LEVAQUIN [Concomitant]
  7. LOVENOX [Concomitant]
  8. ZANTAC [Concomitant]

REACTIONS (5)
  - BUNDLE BRANCH BLOCK [None]
  - DYSPNOEA [None]
  - PYREXIA [None]
  - THROMBOSIS [None]
  - TREMOR [None]
